FAERS Safety Report 4925445-2 (Version None)
Quarter: 2006Q1

REPORT INFORMATION
  Report Type: 
  Country: None (occurrence: None)
  Receive Date: 20060228
  Receipt Date: 20050222
  Transmission Date: 20060701
  Serious: Yes (Other)
  Sender: FDA-Public Use
  Company Number: US-GLAXOSMITHKLINE-A0546736A

PATIENT
  Sex: Male

DRUGS (3)
  1. LAMICTAL [Suspect]
     Indication: BIPOLAR DISORDER
     Route: 048
  2. VALPROATE SODIUM [Concomitant]
  3. AMOXICILLIN [Concomitant]

REACTIONS (3)
  - ORAL MUCOSAL BLISTERING [None]
  - RASH [None]
  - SWELLING FACE [None]
